FAERS Safety Report 5661784-8 (Version None)
Quarter: 2008Q1

REPORT INFORMATION
  Report Type: 
  Country: None (occurrence: None)
  Receive Date: 20080312
  Receipt Date: 20080303
  Transmission Date: 20080703
  Serious: Yes (Other)
  Sender: FDA-Public Use
  Company Number: JP-ASTRAZENECA-2008AP01755

PATIENT
  Age: 10 Month

DRUGS (1)
  1. XYLOCAINE [Suspect]
     Indication: EPIDURAL ANAESTHESIA
     Dosage: 30 ML OF XYLOCAINE POLYAMP 1 % DURING OPERATION
     Route: 008
     Dates: start: 20080201, end: 20080201

REACTIONS (1)
  - DRUG TOXICITY [None]
